FAERS Safety Report 23356114 (Version 1)
Quarter: 2024Q1

REPORT INFORMATION
  Report Type: Spontaneous
  Country: US (occurrence: US)
  Receive Date: 20240102
  Receipt Date: 20240102
  Transmission Date: 20240410
  Serious: No
  Sender: FDA-Public Use
  Company Number: US-ABBVIE-5560149

PATIENT
  Age: 70 Year
  Sex: Male

DRUGS (2)
  1. MAVYRET [Suspect]
     Active Substance: GLECAPREVIR\PIBRENTASVIR
     Indication: Chronic hepatitis C
     Route: 048
  2. COUMADIN [Concomitant]
     Active Substance: WARFARIN SODIUM
     Indication: Product used for unknown indication

REACTIONS (8)
  - Pyrexia [Unknown]
  - Syncope [Unknown]
  - Asthenia [Unknown]
  - Hypertension [Unknown]
  - Fall [Unknown]
  - Gait disturbance [Unknown]
  - Decreased appetite [Unknown]
  - Confusional state [Unknown]
